FAERS Safety Report 18100821 (Version 1)
Quarter: 2020Q3

REPORT INFORMATION
  Report Type: Spontaneous
  Country: US (occurrence: US)
  Receive Date: 20200731
  Receipt Date: 20200731
  Transmission Date: 20201103
  Serious: Yes (Other)
  Sender: FDA-Public Use
  Company Number: US-PURDUE-USA-2020-0160173

PATIENT
  Age: 29 Year
  Sex: Male

DRUGS (28)
  1. VALIUM [Concomitant]
     Active Substance: DIAZEPAM
     Indication: SLEEP DISORDER
     Dosage: 0.5 TABLET, TID PRN
     Route: 048
     Dates: start: 20161227, end: 20170427
  2. VALIUM [Concomitant]
     Active Substance: DIAZEPAM
     Dosage: UNK
  3. DOXEPIN HYDROCHLORIDE. [Concomitant]
     Active Substance: DOXEPIN HYDROCHLORIDE
     Dosage: 1.5 TABLET, DAILY
     Route: 048
     Dates: start: 20131220, end: 20140117
  4. VALIUM [Concomitant]
     Active Substance: DIAZEPAM
     Indication: ANXIETY
     Dosage: 0.5 TABLET, TID PRN
     Route: 048
     Dates: start: 201102, end: 201901
  5. SEROQUEL [Concomitant]
     Active Substance: QUETIAPINE FUMARATE
     Indication: SLEEP DISORDER
     Dosage: 3 TABLET, HS
     Route: 048
     Dates: start: 2013, end: 201901
  6. VARENICLINE TARTRATE [Concomitant]
     Active Substance: VARENICLINE TARTRATE
     Indication: PRODUCT USED FOR UNKNOWN INDICATION
     Dosage: 0.5 TABLET, DAILY
     Route: 048
     Dates: start: 20170505
  7. DEXTROAMPHETAMINE SULFATE. [Concomitant]
     Active Substance: DEXTROAMPHETAMINE SULFATE
     Indication: ATTENTION DEFICIT HYPERACTIVITY DISORDER
     Dosage: 1 TABLET, BID
     Route: 048
     Dates: start: 20160927
  8. FLUOXETINE HYDROCHLORIDE. [Concomitant]
     Active Substance: FLUOXETINE HYDROCHLORIDE
     Indication: PRODUCT USED FOR UNKNOWN INDICATION
     Dosage: 1 TABLET, DAILY
     Route: 048
     Dates: start: 20131220, end: 20140103
  9. METHADONE HYDROCHLORIDE. [Concomitant]
     Active Substance: METHADONE HYDROCHLORIDE
     Indication: PRODUCT USED FOR UNKNOWN INDICATION
     Dosage: 115 MG, DAILY
     Route: 048
     Dates: start: 20140211
  10. VENLAFAXINE HYDROCHLORIDE. [Concomitant]
     Active Substance: VENLAFAXINE HYDROCHLORIDE
     Dosage: 2 TABLET, HS
     Route: 048
     Dates: start: 20140109, end: 20140117
  11. VARENICLINE TARTRATE [Concomitant]
     Active Substance: VARENICLINE TARTRATE
     Dosage: 0.5 TABLET, BID
     Route: 048
     Dates: start: 201705
  12. VARENICLINE TARTRATE [Concomitant]
     Active Substance: VARENICLINE TARTRATE
     Dosage: 1 TABLET, BID
     Route: 048
     Dates: start: 201705
  13. DEXTROAMPHET SACCHARAT, AMPHET ASPARTATE, DEXTROAMPHET SULFATE AND AMPHET SULFAT [Concomitant]
     Active Substance: AMPHETAMINE ASPARTATE\AMPHETAMINE SULFATE\DEXTROAMPHETAMINE SACCHARATE\DEXTROAMPHETAMINE SULFATE
     Indication: ATTENTION DEFICIT HYPERACTIVITY DISORDER
     Dosage: 1 TABLET, TID
     Dates: start: 20160202, end: 20160513
  14. CLONAZEPAM. [Concomitant]
     Active Substance: CLONAZEPAM
     Dosage: 0.5 TABLET, HS
     Route: 048
     Dates: start: 20140103, end: 20140128
  15. DOXEPIN HYDROCHLORIDE. [Concomitant]
     Active Substance: DOXEPIN HYDROCHLORIDE
     Indication: INSOMNIA
     Dosage: 5 CAPSL, DAILY
     Route: 048
     Dates: start: 20131212, end: 20131220
  16. FENTANYL. [Suspect]
     Active Substance: FENTANYL
     Indication: HERNIA REPAIR
     Dosage: UNK
     Route: 065
     Dates: start: 20020829
  17. GABAPENTIN. [Concomitant]
     Active Substance: GABAPENTIN
     Indication: RESTLESS LEGS SYNDROME
     Dosage: 2 CAPSL, HS
     Route: 048
     Dates: start: 20160614
  18. LORAZEPAM. [Concomitant]
     Active Substance: LORAZEPAM
     Indication: DENTAL OPERATION
     Dosage: 1 TABLET, UD
     Route: 048
     Dates: start: 20170412
  19. BUTRANS [Suspect]
     Active Substance: BUPRENORPHINE
     Dosage: UNK
     Route: 062
  20. ZOLPIDEM TARTRATE. [Suspect]
     Active Substance: ZOLPIDEM TARTRATE
     Indication: SLEEP DISORDER
     Dosage: 1 TABLET, HS
     Route: 048
     Dates: start: 20140117, end: 20160516
  21. VENLAFAXINE HYDROCHLORIDE. [Concomitant]
     Active Substance: VENLAFAXINE HYDROCHLORIDE
     Indication: PRODUCT USED FOR UNKNOWN INDICATION
     Dosage: 1 TABLET, HS
     Route: 048
     Dates: start: 20140103, end: 20140109
  22. MORPHINE SULFATE (SIMILAR TO NDA 19?516) [Suspect]
     Active Substance: MORPHINE SULFATE
     Indication: PAIN
     Dosage: 2 TABLET, Q4H PRN
     Route: 048
     Dates: start: 20140214, end: 20140218
  23. VALIUM [Concomitant]
     Active Substance: DIAZEPAM
     Dosage: 2 TABLET, TID PRN
     Route: 048
     Dates: start: 20140128, end: 20140304
  24. VYVANSE [Concomitant]
     Active Substance: LISDEXAMFETAMINE DIMESYLATE
     Indication: PRODUCT USED FOR UNKNOWN INDICATION
     Dosage: 1 CAPSL, DAILY
     Route: 048
     Dates: start: 20160707
  25. CLONAZEPAM. [Concomitant]
     Active Substance: CLONAZEPAM
     Indication: PRODUCT USED FOR UNKNOWN INDICATION
     Dosage: 1 TABLET, HS
     Route: 048
     Dates: start: 20140103, end: 20140128
  26. DIVALPROEX SODIUM. [Concomitant]
     Active Substance: DIVALPROEX SODIUM
     Indication: INSOMNIA
     Dosage: 1 TABLET, BID
     Route: 048
     Dates: start: 20160614
  27. ADDERALL [Concomitant]
     Active Substance: AMPHETAMINE ASPARTATE\AMPHETAMINE SULFATE\DEXTROAMPHETAMINE SACCHARATE\DEXTROAMPHETAMINE SULFATE
     Indication: ATTENTION DEFICIT HYPERACTIVITY DISORDER
     Dosage: UNK, UNK
     Route: 048
     Dates: start: 2013, end: 201901
  28. BUSPIRONE [Concomitant]
     Active Substance: BUSPIRONE HYDROCHLORIDE
     Indication: ANXIETY
     Dosage: 1 TABLET, TID
     Route: 048
     Dates: start: 20140117, end: 20140401

REACTIONS (28)
  - Decreased appetite [None]
  - Depression [Not Recovered/Not Resolved]
  - Executive dysfunction [Not Recovered/Not Resolved]
  - Economic problem [Unknown]
  - Mental disorder [Unknown]
  - Tooth disorder [Not Recovered/Not Resolved]
  - Memory impairment [Not Recovered/Not Resolved]
  - Disorientation [Not Recovered/Not Resolved]
  - Homeless [Unknown]
  - Suicidal ideation [Unknown]
  - Electrocardiogram QT prolonged [Not Recovered/Not Resolved]
  - Somnolence [Unknown]
  - Psychotic disorder [Unknown]
  - Legal problem [Unknown]
  - Impaired quality of life [Not Recovered/Not Resolved]
  - Unevaluable event [Unknown]
  - Dysuria [Unknown]
  - Respiration abnormal [Not Recovered/Not Resolved]
  - Tachycardia [Not Recovered/Not Resolved]
  - Disturbance in attention [Not Recovered/Not Resolved]
  - Sleep disorder [Unknown]
  - Generalised anxiety disorder [Not Recovered/Not Resolved]
  - Post-traumatic stress disorder [Unknown]
  - Attention deficit hyperactivity disorder [Not Recovered/Not Resolved]
  - Dependence [Unknown]
  - Dyspnoea [Not Recovered/Not Resolved]
  - Chest pain [Unknown]
  - Learning disorder [Not Recovered/Not Resolved]

NARRATIVE: CASE EVENT DATE: 201909
